FAERS Safety Report 5194564-0 (Version None)
Quarter: 2006Q4

REPORT INFORMATION
  Report Type: 
  Country: None (occurrence: None)
  Receive Date: 20061221
  Receipt Date: 20061213
  Transmission Date: 20070319
  Serious: Yes (Congenital Anomaly, Other)
  Sender: FDA-Public Use
  Company Number: A-JP2006-13677

PATIENT
  Age: 37 Year
  Sex: Female

DRUGS (7)
  1. TRACLEER [Suspect]
     Indication: PULMONARY HYPERTENSION
     Dosage: 62.5 MG, BID, ORAL, SEE IMAGE
     Route: 048
     Dates: start: 20060706, end: 20060727
  2. TRACLEER [Suspect]
     Indication: PULMONARY HYPERTENSION
     Dosage: 62.5 MG, BID, ORAL, SEE IMAGE
     Route: 048
     Dates: start: 20060907
  3. CEFACLOR [Suspect]
  4. CEFCAPENE PIVOXIL HYDROCHLORIDE (CEFCAPENE PIVOXIL HYDROCHLORIDE) [Suspect]
  5. BERAPROST SODIUM [Concomitant]
  6. WARFARIN SODIUM [Concomitant]
  7. OXYGEN [Concomitant]

REACTIONS (7)
  - ABORTION INDUCED [None]
  - ABORTION MISSED [None]
  - ALANINE AMINOTRANSFERASE INCREASED [None]
  - ASPARTATE AMINOTRANSFERASE INCREASED [None]
  - BLOOD ALKALINE PHOSPHATASE INCREASED [None]
  - DRUG INTERACTION [None]
  - UNINTENDED PREGNANCY [None]
